FAERS Safety Report 17563373 (Version 1)
Quarter: 2020Q1

REPORT INFORMATION
  Report Type: Spontaneous
  Country: US (occurrence: US)
  Receive Date: 20200319
  Receipt Date: 20200319
  Transmission Date: 20200409
  Serious: No
  Sender: FDA-Public Use
  Company Number: US-CATALYST PHARMACEUTICALS, INC-2019CAT00676

PATIENT
  Sex: Female
  Weight: 49.89 kg

DRUGS (6)
  1. GAMMAGARD [Concomitant]
     Active Substance: HUMAN IMMUNOGLOBULIN G
  2. FIRDAPSE [Suspect]
     Active Substance: AMIFAMPRIDINE
     Indication: MYASTHENIC SYNDROME
     Dosage: 15 MG, 4X/DAY
     Route: 048
     Dates: start: 20190626
  3. AMBIEN [Concomitant]
     Active Substance: ZOLPIDEM TARTRATE
  4. MESTINON [Concomitant]
     Active Substance: PYRIDOSTIGMINE BROMIDE
  5. VITAMIN D [Concomitant]
     Active Substance: VITAMIN D NOS
  6. CEVIMELINE. [Concomitant]
     Active Substance: CEVIMELINE

REACTIONS (1)
  - Paraesthesia [Not Recovered/Not Resolved]

NARRATIVE: CASE EVENT DATE: 2019
